FAERS Safety Report 7565653-8 (Version None)
Quarter: 2011Q2

REPORT INFORMATION
  Report Type: 
  Country: None (occurrence: None)
  Receive Date: 20110616
  Receipt Date: 20110608
  Transmission Date: 20111010
  Serious: Yes (Death, Hospitalization)
  Sender: FDA-Public Use
  Company Number: ALP-11-01

PATIENT
  Sex: Female

DRUGS (6)
  1. SIMVASTATIN [Concomitant]
  2. ALPRAZOLAM [Suspect]
  3. SITAGLIPTIN/METFORMIN [Concomitant]
  4. FENOFIBRATE [Concomitant]
  5. OXYMORPHONE [Concomitant]
  6. RISPERIDONE [Concomitant]

REACTIONS (6)
  - INCORRECT ROUTE OF DRUG ADMINISTRATION [None]
  - WRONG TECHNIQUE IN DRUG USAGE PROCESS [None]
  - CYANOSIS [None]
  - LOSS OF CONSCIOUSNESS [None]
  - DYSPNOEA [None]
  - OVERDOSE [None]
